FAERS Safety Report 12254444 (Version 1)
Quarter: 2016Q2

REPORT INFORMATION
  Report Type: Spontaneous
  Country: GB (occurrence: GB)
  Receive Date: 20160411
  Receipt Date: 20160411
  Transmission Date: 20160815
  Serious: Yes (Hospitalization)
  Sender: FDA-Public Use
  Company Number: GB-IPCA LABORATORIES LIMITED-IPC201603-000360

PATIENT
  Age: 30 Year
  Sex: Male

DRUGS (1)
  1. CHLOROQUINE PHOSPHATE. [Suspect]
     Active Substance: CHLOROQUINE PHOSPHATE
     Indication: PARASITIC INFECTION PROPHYLAXIS

REACTIONS (2)
  - Generalised tonic-clonic seizure [Unknown]
  - Joint dislocation [Recovered/Resolved]
